FAERS Safety Report 4887703-X (Version None)
Quarter: 2006Q1

REPORT INFORMATION
  Report Type: 
  Country: None (occurrence: None)
  Receive Date: 20060118
  Receipt Date: 20051230
  Transmission Date: 20060701
  Serious: Yes (Hospitalization, Other)
  Sender: FDA-Public Use
  Company Number: 2005-DE-05694GD

PATIENT
  Age: 17 Year
  Sex: Female

DRUGS (5)
  1. ACETAMINOPHEN [Suspect]
     Indication: DYSMENORRHOEA
     Dosage: 1 G,
  2. SCOPOLAMINE-BUTYLBROMIDE (HYOSCINE BUTYLBROMIDE) [Suspect]
     Indication: DYSMENORRHOEA
     Dosage: 10 MG,
  3. ASPIRIN [Suspect]
     Indication: DYSMENORRHOEA
     Dosage: 100 MG,
  4. NAPROXEN [Suspect]
     Indication: DYSMENORRHOEA
     Dosage: 250 MG,
  5. PREDNISONE [Suspect]
     Indication: HEPATITIS

REACTIONS (7)
  - ARTHRALGIA [None]
  - AUTOIMMUNE HEPATITIS [None]
  - HEPATIC NECROSIS [None]
  - HEPATOTOXICITY [None]
  - HUMAN HERPES VIRUS 6 SEROLOGY POSITIVE [None]
  - HYPERSENSITIVITY [None]
  - INFLUENZA LIKE ILLNESS [None]
